FAERS Safety Report 7246251-2 (Version None)
Quarter: 2011Q1

REPORT INFORMATION
  Report Type: 
  Country: None (occurrence: None)
  Receive Date: 20110126
  Receipt Date: 20110113
  Transmission Date: 20110831
  Serious: Yes (Hospitalization)
  Sender: FDA-Public Use
  Company Number: US-ROCHE-752284

PATIENT
  Sex: Female
  Weight: 59.5 kg

DRUGS (18)
  1. IBUPROFEN [Concomitant]
     Indication: PAIN
     Dosage: FREQUENCY: EVERY 6-8 HOURS.
     Route: 048
  2. NEUTRA-PHOS [Concomitant]
     Dosage: DOSE: ONE PACK TWICE DAILY.
     Route: 048
  3. CALCIUM/VITAMIN D [Concomitant]
     Route: 048
  4. CHOLECALCIFEROL [Concomitant]
     Route: 065
  5. LORAZEPAM [Concomitant]
     Dosage: DOSE REPORTED AS 0.5 MG 1-2 TABLETS PO AS NECESSARY.
     Route: 048
  6. BEVACIZUMAB [Suspect]
     Indication: GLIOBLASTOMA MULTIFORME
     Dosage: FORM REPORTED AS VAILS. DOSE REPORTED AS 10 MG/KG (650 MG).
     Route: 065
     Dates: start: 20100722
  7. TEMOZOLOMIDE [Suspect]
     Indication: GLIOBLASTOMA MULTIFORME
     Dosage: REPORTED AS 200MG/M2 DAY1-5 EVERY 28 DAYS.
     Route: 065
     Dates: start: 20100422
  8. ZEGERID [Concomitant]
     Route: 048
  9. LISINOPRIL [Concomitant]
     Route: 048
  10. RESVERATROL [Concomitant]
     Dosage: FREQUENCY REPORTED AS DAILY. DRUG REPORTED AS RESERVATROL.
     Route: 048
  11. ENOXAPARIN SODIUM [Concomitant]
     Dosage: DRUG NAME: LEVONOX
     Route: 058
  12. TRIAMTERENE AND HYDROCHLOROTHIAZIDE [Concomitant]
     Dosage: DOSE: UNKNOWN PO DAILY.
     Route: 048
  13. ACETAMINOPHEN [Concomitant]
     Indication: PAIN
     Dosage: FREQUENCY: 500 X 2 EVERY 4 HOURS AS NEEDED
     Route: 048
  14. MONAVIE [Concomitant]
     Route: 048
  15. DIGOXIN [Concomitant]
     Route: 048
  16. OMEGA [Concomitant]
     Dosage: OMEGA-3 DAILY.
     Route: 048
  17. ONDANSETRON [Concomitant]
     Indication: NAUSEA
     Dosage: DOSE: 8 MG AS NECESSARY
     Route: 048
  18. SENOKOT [Concomitant]
     Indication: CONSTIPATION
     Dosage: DOSE: 1-2 TABLETS TWICE DAILY.
     Route: 065

REACTIONS (8)
  - ATRIAL FIBRILLATION [None]
  - NEUTROPHIL COUNT DECREASED [None]
  - BLOOD PHOSPHORUS DECREASED [None]
  - BLOOD POTASSIUM DECREASED [None]
  - EROSIVE OESOPHAGITIS [None]
  - WHITE BLOOD CELL COUNT DECREASED [None]
  - ISCHAEMIA [None]
  - GASTRITIS EROSIVE [None]
